FAERS Safety Report 8367381-8 (Version None)
Quarter: 2012Q2

REPORT INFORMATION
  Report Type: 
  Country: None (occurrence: None)
  Receive Date: 20120517
  Receipt Date: 20120507
  Transmission Date: 20120825
  Serious: Yes (Hospitalization)
  Sender: FDA-Public Use
  Company Number: JP-ALEXION PHARMACEUTICALS INC.-A201200914

PATIENT
  Age: 85 Year
  Sex: Female

DRUGS (16)
  1. NEORAL [Concomitant]
     Dosage: 75 MG, QD
     Dates: start: 20100914, end: 20101025
  2. WARFARIN SODIUM [Concomitant]
     Dosage: 1.25 MG, QD
     Dates: start: 20100705, end: 20111121
  3. DANAZOL [Suspect]
     Dosage: 400 MG, QD
     Dates: start: 20111107
  4. BLOOD TRANSFUSION, AUXILIARY PRODUCTS [Concomitant]
     Dosage: 54 UNITS
     Dates: start: 20110101, end: 20110101
  5. PLATELETS [Concomitant]
     Dosage: 10 UNITSUNK
     Dates: start: 20120217, end: 20120217
  6. WARFARIN SODIUM [Concomitant]
     Dosage: 1 MG, QD
     Dates: start: 20110128, end: 20111226
  7. ALFAROL [Concomitant]
     Dosage: 0.75 ?G, QD
     Dates: start: 20080602, end: 20110228
  8. SOLIRIS [Suspect]
     Indication: PAROXYSMAL NOCTURNAL HAEMOGLOBINURIA
  9. NEORAL [Concomitant]
     Dosage: 50 MG, QD
     Dates: start: 20101026, end: 20120116
  10. NEORAL [Concomitant]
     Dosage: 20 MG, QD
     Dates: start: 20120117, end: 20120227
  11. FOLAMIN [Concomitant]
     Dosage: 15 MG, QD
     Dates: start: 20081006, end: 20120305
  12. PREDNISOLONE [Concomitant]
     Dosage: 5 MG, QD
     Dates: start: 20101122, end: 20101221
  13. NEORAL [Concomitant]
     Dosage: 10 MG, Q 2ND DAY
     Dates: start: 20120228
  14. ACETAMINOPHEN [Concomitant]
     Dosage: 1500 MG, QD
     Dates: start: 20110315, end: 20120130
  15. DESFERAL [Concomitant]
     Dosage: 1000 MG, QD
     Route: 030
     Dates: start: 20111205
  16. PLATELETS [Concomitant]
     Dosage: 10 UNITS
     Dates: start: 20120220, end: 20120220

REACTIONS (3)
  - PRODUCTIVE COUGH [None]
  - SEPSIS [None]
  - URINARY TRACT INFECTION [None]
